FAERS Safety Report 10169334 (Version 1)
Quarter: 2014Q2

REPORT INFORMATION
  Report Type: Spontaneous
  Country: US (occurrence: US)
  Receive Date: 20140513
  Receipt Date: 20140513
  Transmission Date: 20141212
  Serious: No
  Sender: FDA-Public Use
  Company Number: US-PFIZER INC-2014128361

PATIENT
  Age: 64 Year
  Sex: Male

DRUGS (8)
  1. SUTENT [Suspect]
     Indication: RENAL CANCER
     Dosage: 50 MG, DAILY
     Route: 048
     Dates: start: 20140312
  2. LOPRESSOR [Concomitant]
     Dosage: UNK
  3. ONDANSETRON [Concomitant]
     Dosage: UNK
  4. COZAAR [Concomitant]
     Dosage: UNK
  5. LASIX [Concomitant]
     Dosage: UNK
  6. PLAVIX [Concomitant]
     Dosage: UNK
  7. SPIRONOLACTONE [Concomitant]
     Dosage: UNK
  8. AVODART [Concomitant]
     Dosage: UNK

REACTIONS (2)
  - Gastric disorder [Unknown]
  - Anorectal disorder [Unknown]
